FAERS Safety Report 8616209-7 (Version None)
Quarter: 2012Q3

REPORT INFORMATION
  Report Type: 
  Country: None (occurrence: None)
  Receive Date: 20120823
  Receipt Date: 20120822
  Transmission Date: 20120928
  Serious: Yes (Other)
  Sender: FDA-Public Use
  Company Number: US-ROCHE-1065347

PATIENT
  Sex: Female
  Weight: 63.56 kg

DRUGS (3)
  1. ACCUTANE [Suspect]
     Indication: ACNE
     Dates: start: 19890101
  2. ACCUTANE [Suspect]
     Dates: start: 19900401, end: 19900601
  3. ASPIRIN [Concomitant]

REACTIONS (11)
  - MALNUTRITION [None]
  - POST-TRAUMATIC STRESS DISORDER [None]
  - DEPRESSION [None]
  - SUICIDAL IDEATION [None]
  - PERNICIOUS ANAEMIA [None]
  - CROHN'S DISEASE [None]
  - IRRITABLE BOWEL SYNDROME [None]
  - STRESS [None]
  - COLITIS MICROSCOPIC [None]
  - INFLAMMATORY BOWEL DISEASE [None]
  - COLONIC POLYP [None]
